FAERS Safety Report 21693248 (Version 1)
Quarter: 2022Q4

REPORT INFORMATION
  Report Type: Spontaneous
  Country: FR (occurrence: FR)
  Receive Date: 20221207
  Receipt Date: 20221207
  Transmission Date: 20230113
  Serious: Yes (Death, Congenital Anomaly)
  Sender: FDA-Public Use
  Company Number: None

PATIENT
  Age: 23 Week
  Sex: Male

DRUGS (2)
  1. LEVOTHYROXINE [Suspect]
     Active Substance: LEVOTHYROXINE
     Indication: Hypothyroidism
     Route: 064
  2. MODERNA COVID-19 VACCINE [Suspect]
     Active Substance: ELASOMERAN
     Indication: COVID-19 immunisation
     Dosage: R1
     Route: 064
     Dates: start: 20211217, end: 20211217

REACTIONS (5)
  - Multiple congenital abnormalities [Fatal]
  - Hypospadias [Fatal]
  - Dysmorphism [Fatal]
  - Foetal growth restriction [Fatal]
  - Heart disease congenital [Fatal]
